FAERS Safety Report 24055636 (Version 1)
Quarter: 2024Q3

REPORT INFORMATION
  Report Type: Spontaneous
  Country: US (occurrence: None)
  Receive Date: 20240703
  Receipt Date: 20240703
  Transmission Date: 20241017
  Serious: Yes (Disabling)
  Sender: Public
  Company Number: None

PATIENT
  Age: 62 Year
  Sex: Female
  Weight: 63 kg

DRUGS (7)
  1. RYALTRIS [Suspect]
     Active Substance: MOMETASONE FUROATE MONOHYDRATE\OLOPATADINE HYDROCHLORIDE
     Indication: Nasal congestion
     Dosage: FREQUENCY : TWICE A DAY;?OTHER ROUTE : INTRANSAL;?
     Route: 050
     Dates: start: 20240624, end: 20240629
  2. CEQUA EYEDROPS [Concomitant]
  3. STEREO EYEDROPS [Concomitant]
  4. VITAMIN C [Concomitant]
     Active Substance: ASCORBIC ACID
  5. COENZYME Q10 [Concomitant]
     Active Substance: DIETARY SUPPLEMENT\UBIDECARENONE
  6. B2 [Concomitant]
  7. MAGNESIUM/CALCIUM/VIT D [Concomitant]

REACTIONS (4)
  - Aphasia [None]
  - Nausea [None]
  - Eye pain [None]
  - Migraine [None]

NARRATIVE: CASE EVENT DATE: 20240629
